FAERS Safety Report 7917986-0 (Version None)
Quarter: 2011Q4

REPORT INFORMATION
  Report Type: 
  Country: None (occurrence: None)
  Receive Date: 20111116
  Receipt Date: 20111115
  Transmission Date: 20120403
  Serious: Yes (Death, Other)
  Sender: FDA-Public Use
  Company Number: PHHY2011AU82020

PATIENT
  Sex: Female

DRUGS (8)
  1. IBUPROFEN [Concomitant]
     Dosage: UNK UKN, PRN
  2. TRIFENE [Concomitant]
     Dosage: UNK UKN, UNK
     Route: 048
  3. LEVONORGESTREL AND ETHINYL ESTRADIOL [Concomitant]
     Dosage: UNK UKN, UNK
  4. GILENYA [Suspect]
     Indication: MULTIPLE SCLEROSIS
     Dosage: 0.5 MG, UNK
     Route: 048
     Dates: start: 20110621, end: 20110827
  5. BETASERON [Concomitant]
     Dosage: UNK UKN, UNK
     Dates: start: 20010501, end: 20110801
  6. TRAMADOL HYDROCHLORIDE [Concomitant]
     Dosage: UNK UKN, PRN
     Route: 048
  7. ORAL CONTRACEPTIVE NOS [Concomitant]
     Dosage: UNK UKN, UNK
  8. VALPROATE SODIUM [Concomitant]
     Dosage: UNK UKN, UNK
     Route: 048

REACTIONS (19)
  - CIRCULATORY COLLAPSE [None]
  - CARDIAC FAILURE [None]
  - CARDIAC DISORDER [None]
  - HYPOTENSION [None]
  - COAGULOPATHY [None]
  - TACHYCARDIA [None]
  - BLOOD PRESSURE ABNORMAL [None]
  - CHEST PAIN [None]
  - CARDIOGENIC SHOCK [None]
  - LEFT VENTRICULAR DYSFUNCTION [None]
  - EJECTION FRACTION DECREASED [None]
  - PLATELET COUNT DECREASED [None]
  - MYOCARDIAL INFARCTION [None]
  - ATRIAL FIBRILLATION [None]
  - RENAL FAILURE ACUTE [None]
  - PAIN IN EXTREMITY [None]
  - VENOUS THROMBOSIS [None]
  - ARTERIAL THROMBOSIS [None]
  - DEVICE OCCLUSION [None]
